FAERS Safety Report 5445683-2 (Version None)
Quarter: 2007Q3

REPORT INFORMATION
  Report Type: 
  Country: None (occurrence: None)
  Receive Date: 20070904
  Receipt Date: 20070824
  Transmission Date: 20080115
  Serious: Yes (Other)
  Sender: FDA-Public Use
  Company Number: 2007324036

PATIENT
  Age: 34 Year
  Sex: Female
  Weight: 63.5 kg

DRUGS (1)
  1. VISINE-A [Suspect]
     Indication: DRY EYE
     Dosage: ONE DROP EVERY OTHER COUPLE OF DAYS, OPHTHALMIC
     Route: 047

REACTIONS (3)
  - EYE BURNS [None]
  - EYE DISORDER [None]
  - EYE PAIN [None]
